FAERS Safety Report 4613324-X (Version None)
Quarter: 2005Q1

REPORT INFORMATION
  Report Type: 
  Country: None (occurrence: None)
  Receive Date: 20050315
  Receipt Date: 20050302
  Transmission Date: 20050727
  Serious: Yes (Hospitalization)
  Sender: FDA-Public Use
  Company Number: EM2005-0080

PATIENT
  Age: 37 Year
  Sex: Male
  Weight: 50.5 kg

DRUGS (6)
  1. MACROLIN [Suspect]
     Indication: HIV INFECTION
     Dosage: 9 MIU, QD
     Dates: start: 20040329, end: 20040402
  2. MACROLIN [Suspect]
     Indication: HIV INFECTION
     Dosage: 9 MIU, QD
     Dates: start: 20040524, end: 20040528
  3. MACROLIN [Suspect]
     Indication: HIV INFECTION
     Dosage: 9 MIU, QD
     Dates: start: 20040705, end: 20040709
  4. MACROLIN [Suspect]
     Indication: HIV INFECTION
     Dosage: 9 MIU, QD
     Dates: start: 20040913, end: 20040917
  5. MACROLIN [Suspect]
  6. BACTRIM [Concomitant]

REACTIONS (6)
  - FATIGUE [None]
  - HODGKIN'S DISEASE [None]
  - HYPERHIDROSIS [None]
  - LYMPHADENOPATHY [None]
  - PYREXIA [None]
  - WEIGHT DECREASED [None]
